APPROVED DRUG PRODUCT: NIMODIPINE
Active Ingredient: NIMODIPINE
Strength: 30MG
Dosage Form/Route: CAPSULE;ORAL
Application: A090103 | Product #001 | TE Code: AB
Applicant: THEPHARMANETWORK LLC
Approved: Apr 7, 2014 | RLD: No | RS: No | Type: RX